FAERS Safety Report 9699510 (Version 1)
Quarter: 2013Q4

REPORT INFORMATION
  Report Type: Spontaneous
  Country: US (occurrence: US)
  Receive Date: 20131120
  Receipt Date: 20131120
  Transmission Date: 20140711
  Serious: No
  Sender: FDA-Public Use
  Company Number: US-TEVA-369375USA

PATIENT
  Age: 35 Year
  Sex: Female
  Weight: 83.99 kg

DRUGS (3)
  1. PARAGARD 380A [Suspect]
     Indication: CONTRACEPTION
     Route: 015
     Dates: start: 201202
  2. AMBIEN [Concomitant]
     Indication: INSOMNIA
  3. FLONASE [Concomitant]
     Indication: HYPERSENSITIVITY

REACTIONS (1)
  - Tremor [Not Recovered/Not Resolved]
